FAERS Safety Report 20045214 (Version 1)
Quarter: 2021Q4

REPORT INFORMATION
  Report Type: Spontaneous
  Country: GB (occurrence: GB)
  Receive Date: 20211108
  Receipt Date: 20211108
  Transmission Date: 20220303
  Serious: Yes (Hospitalization)
  Sender: FDA-Public Use
  Company Number: None

PATIENT
  Age: 57 Year
  Sex: Female
  Weight: 54 kg

DRUGS (12)
  1. CYCLOSPORINE [Suspect]
     Active Substance: CYCLOSPORINE
     Indication: Prophylaxis against transplant rejection
     Dosage: 150 MILLIGRAM DAILY;
     Route: 048
  2. COLCHICINE [Suspect]
     Active Substance: COLCHICINE
     Indication: Myocarditis
     Dosage: 500 MICROGRAM DAILY;
     Route: 048
     Dates: start: 20210409, end: 20210427
  3. CALCIUM CARBONATE\CHOLECALCIFEROL [Concomitant]
     Active Substance: CALCIUM CARBONATE\CHOLECALCIFEROL
     Indication: Ill-defined disorder
  4. ASPIRIN [Concomitant]
     Active Substance: ASPIRIN
     Indication: Ill-defined disorder
  5. BISACODYL [Concomitant]
     Active Substance: BISACODYL
     Indication: Ill-defined disorder
  6. EZETIMIBE [Concomitant]
     Active Substance: EZETIMIBE
     Indication: Ill-defined disorder
  7. FLUDROCORTISONE ACETATE [Concomitant]
     Active Substance: FLUDROCORTISONE ACETATE
     Indication: Ill-defined disorder
  8. GABAPENTIN [Concomitant]
     Active Substance: GABAPENTIN
     Indication: Ill-defined disorder
  9. LEVEMIR [Concomitant]
     Active Substance: INSULIN DETEMIR
     Indication: Ill-defined disorder
  10. MYCOPHENOLATE MOFETIL [Concomitant]
     Active Substance: MYCOPHENOLATE MOFETIL
     Indication: Ill-defined disorder
  11. NOVORAPID [Concomitant]
     Active Substance: INSULIN ASPART
     Indication: Ill-defined disorder
  12. ACETAMINOPHEN [Concomitant]
     Active Substance: ACETAMINOPHEN
     Indication: Ill-defined disorder

REACTIONS (1)
  - Muscular weakness [Recovering/Resolving]

NARRATIVE: CASE EVENT DATE: 20210419
